FAERS Safety Report 6785596-7 (Version None)
Quarter: 2010Q2

REPORT INFORMATION
  Report Type: 
  Country: None (occurrence: None)
  Receive Date: 20100623
  Receipt Date: 20100608
  Transmission Date: 20101027
  Serious: Yes (Hospitalization)
  Sender: FDA-Public Use
  Company Number: US-BAYER-201025461NA

PATIENT
  Age: 34 Year
  Sex: Female
  Weight: 92 kg

DRUGS (9)
  1. CAMPATH [Suspect]
     Indication: MULTIPLE SCLEROSIS
  2. REBIF [Concomitant]
     Dosage: TITRATED UP TO 44 MCG
     Route: 058
     Dates: start: 20030715, end: 20041017
  3. REBIF [Concomitant]
     Dosage: TITRATED UP TO 44 MCG
     Route: 058
     Dates: start: 20041115, end: 20081218
  4. METHIMAZOLE [Concomitant]
     Dates: start: 20090825, end: 20091003
  5. LEVOTHYROXINE SODIUM [Concomitant]
     Dates: start: 20091124, end: 20091220
  6. LEVOTHYROXINE SODIUM [Concomitant]
     Dates: start: 20091221, end: 20100204
  7. LEVOTHYROXINE SODIUM [Concomitant]
     Dates: start: 20100205, end: 20100408
  8. LEVOTHYROXINE SODIUM [Concomitant]
     Dates: start: 20100409
  9. IODINE (131 I) [Concomitant]
     Dates: start: 20091009, end: 20091009

REACTIONS (1)
  - THYROID CANCER [None]
